FAERS Safety Report 11700471 (Version 1)
Quarter: 2015Q4

REPORT INFORMATION
  Report Type: Spontaneous
  Country: NL (occurrence: NL)
  Receive Date: 20151105
  Receipt Date: 20151105
  Transmission Date: 20160304
  Serious: Yes (Other)
  Sender: FDA-Public Use
  Company Number: NL-WATSON-2015-20943

PATIENT
  Age: 34 Year
  Sex: Male

DRUGS (2)
  1. TOBRAMYCIN (UNKNOWN) [Suspect]
     Active Substance: TOBRAMYCIN
     Indication: GRAFT VERSUS HOST DISEASE IN GASTROINTESTINAL TRACT
     Dosage: 80 MG, Q3H  8 TIMES A DAY  FOR 30 DAYS
     Route: 048
  2. TOBRAMYCIN (UNKNOWN) [Suspect]
     Active Substance: TOBRAMYCIN
     Dosage: 80 MG, Q6H 4 TIMES A DAY
     Route: 048

REACTIONS (3)
  - Off label use [Not Recovered/Not Resolved]
  - Drug level above therapeutic [Recovered/Resolved]
  - Renal impairment [Recovered/Resolved]
